FAERS Safety Report 7674425-5 (Version None)
Quarter: 2011Q3

REPORT INFORMATION
  Report Type: 
  Country: None (occurrence: None)
  Receive Date: 20110810
  Receipt Date: 20110805
  Transmission Date: 20111222
  Serious: Yes (Other)
  Sender: FDA-Public Use
  Company Number: US-PFIZER INC-2011136466

PATIENT
  Sex: Female

DRUGS (2)
  1. LIPITOR [Suspect]
     Dosage: UNK
     Route: 048
  2. PLAVIX [Suspect]
     Indication: VASCULAR GRAFT
     Dosage: UNK
     Route: 048

REACTIONS (4)
  - CORONARY ARTERY BYPASS [None]
  - DYSPHAGIA [None]
  - VASCULAR GRAFT [None]
  - OESOPHAGEAL ULCER [None]
